FAERS Safety Report 6359045-7 (Version None)
Quarter: 2009Q3

REPORT INFORMATION
  Report Type: 
  Country: None (occurrence: None)
  Receive Date: 20090917
  Receipt Date: 20090909
  Transmission Date: 20100115
  Serious: Yes (Hospitalization)
  Sender: FDA-Public Use
  Company Number: US-BIOGENIDEC-2009BI028808

PATIENT
  Age: 49 Year
  Sex: Male

DRUGS (11)
  1. TYSABRI [Suspect]
     Indication: MULTIPLE SCLEROSIS
     Route: 042
     Dates: start: 20071220
  2. PRIMIDONE [Concomitant]
  3. BACLOFEN [Concomitant]
     Indication: MUSCLE SPASMS
  4. BACLOFEN [Concomitant]
  5. FOLATE [Concomitant]
     Indication: ANAEMIA
  6. VITAMIN B-12 [Concomitant]
     Route: 030
  7. MULTIVITAMIN WITH ZINC [Concomitant]
     Indication: ANAEMIA
  8. NYSTATIN [Concomitant]
  9. MIRALAX [Concomitant]
  10. REMERON [Concomitant]
  11. OMEPRAZOLE [Concomitant]

REACTIONS (24)
  - ANAEMIA [None]
  - ASTHENIA [None]
  - ATELECTASIS [None]
  - BLOOD GLUCOSE DECREASED [None]
  - BLOOD PRESSURE SYSTOLIC DECREASED [None]
  - BLOOD SODIUM INCREASED [None]
  - BLOOD UREA INCREASED [None]
  - CACHEXIA [None]
  - CONVULSION [None]
  - DEHYDRATION [None]
  - DELIRIUM [None]
  - DELUSION [None]
  - DEMENTIA [None]
  - ENCEPHALOPATHY [None]
  - GASTRITIS [None]
  - HYPERGLYCAEMIA [None]
  - HYPOPHAGIA [None]
  - IMPAIRED GASTRIC EMPTYING [None]
  - LETHARGY [None]
  - MALNUTRITION [None]
  - PNEUMONIA ASPIRATION [None]
  - UNRESPONSIVE TO STIMULI [None]
  - URINARY TRACT INFECTION [None]
  - VOMITING [None]
